FAERS Safety Report 8131801-4 (Version None)
Quarter: 2012Q1

REPORT INFORMATION
  Report Type: 
  Country: None (occurrence: None)
  Receive Date: 20120213
  Receipt Date: 20120201
  Transmission Date: 20120608
  Serious: Yes (Death, Hospitalization, Other)
  Sender: FDA-Public Use
  Company Number: US-MYLANLABS-2012S1002960

PATIENT
  Sex: Male

DRUGS (14)
  1. ASPIRIN [Concomitant]
  2. ACETAMINOPHEN [Concomitant]
  3. CARVEDILOL [Concomitant]
  4. LANTUS [Concomitant]
  5. AMIODARONE HCL [Concomitant]
  6. METFORMIN HCL [Concomitant]
  7. DIGOXIN [Suspect]
     Route: 048
     Dates: start: 20040813, end: 20080601
  8. LIPITOR [Concomitant]
  9. LISINOPRIL [Concomitant]
  10. ALPRAZOLAM [Concomitant]
  11. POTASSIUM [Concomitant]
  12. NEURONTIN [Concomitant]
  13. NIASPAN [Concomitant]
  14. SPIRONOLACTONE [Concomitant]

REACTIONS (34)
  - ECONOMIC PROBLEM [None]
  - CORONARY ARTERY DISEASE [None]
  - RENAL FAILURE ACUTE [None]
  - VENTRICULAR HYPOKINESIA [None]
  - CARDIAC DISORDER [None]
  - MITRAL VALVE INCOMPETENCE [None]
  - IMPLANTABLE DEFIBRILLATOR INSERTION [None]
  - DEATH [None]
  - CARDIOMYOPATHY [None]
  - RENAL TUBULAR NECROSIS [None]
  - HYPERTENSION [None]
  - NEUROPATHY PERIPHERAL [None]
  - PRESYNCOPE [None]
  - PULMONARY VALVE INCOMPETENCE [None]
  - TRICUSPID VALVE INCOMPETENCE [None]
  - INJURY [None]
  - HYPOVOLAEMIA [None]
  - EJECTION FRACTION DECREASED [None]
  - RENAL FAILURE CHRONIC [None]
  - EMOTIONAL DISTRESS [None]
  - DIABETES MELLITUS [None]
  - ASTHENIA [None]
  - FATIGUE [None]
  - DIZZINESS [None]
  - PERICARDIAL EFFUSION [None]
  - CARDIAC FAILURE CONGESTIVE [None]
  - PAIN [None]
  - ANXIETY [None]
  - HEAT STROKE [None]
  - CARDIAC VALVE DISEASE [None]
  - ANAEMIA [None]
  - DEHYDRATION [None]
  - DEPRESSED LEVEL OF CONSCIOUSNESS [None]
  - ILL-DEFINED DISORDER [None]
